FAERS Safety Report 8756889 (Version 1)
Quarter: 2012Q4

REPORT INFORMATION
  Report Type: 
  Country: BR (occurrence: BR)
  Receive Date: 20120828
  Receipt Date: 20120828
  Transmission Date: 20130627
  Serious: Yes (Other)
  Sender: FDA-Public Use
  Company Number: BR-NOVOPROD-358491

PATIENT
  Age: 66 Year
  Sex: Male

DRUGS (1)
  1. NOVOLIN N PENFILL [Suspect]
     Indication: PRODUCT USED FOR UNKNOWN INDICATION
     Route: 065

REACTIONS (5)
  - Syncope [Unknown]
  - Paraesthesia [Unknown]
  - Hyperhidrosis [Unknown]
  - Injection site pain [Unknown]
  - Injection site erythema [Unknown]
